FAERS Safety Report 7427990-7 (Version None)
Quarter: 2011Q2

REPORT INFORMATION
  Report Type: 
  Country: None (occurrence: None)
  Receive Date: 20110413
  Receipt Date: 20110406
  Transmission Date: 20111010
  Serious: Yes (Other)
  Sender: FDA-Public Use
  Company Number: 2011SP015459

PATIENT
  Sex: Male

DRUGS (1)
  1. DEXBROMPHENIRAMINE MALEATE AND PSEUDOEPHEDRINE SULFATE [Suspect]
     Indication: PRODUCT USED FOR UNKNOWN INDICATION
     Dosage: 2 DF; QD; PO
     Route: 048
     Dates: start: 20110404, end: 20110405

REACTIONS (8)
  - NAUSEA [None]
  - POLLAKIURIA [None]
  - ANXIETY [None]
  - TENSION [None]
  - PALPITATIONS [None]
  - ARRHYTHMIA [None]
  - DIZZINESS [None]
  - MUCOSAL DRYNESS [None]
